FAERS Safety Report 6616845-3 (Version None)
Quarter: 2010Q1

REPORT INFORMATION
  Report Type: 
  Country: None (occurrence: None)
  Receive Date: 20100301
  Receipt Date: 20100217
  Transmission Date: 20100710
  Serious: Yes (Death)
  Sender: FDA-Public Use
  Company Number: 008885

PATIENT
  Age: 75 Year
  Sex: Male

DRUGS (5)
  1. SAMSCA [Suspect]
     Indication: HYPONATRAEMIA
     Dosage: 15 MG, QD
     Route: 048
     Dates: start: 20091030, end: 20091130
  2. SAMSCA [Suspect]
     Indication: INAPPROPRIATE ANTIDIURETIC HORMONE SECRETION
     Dosage: 15 MG, QD
     Route: 048
     Dates: start: 20091030, end: 20091130
  3. OMEPRAZOLE [Concomitant]
  4. LISINIOPRIL (LISINOPRIL) [Concomitant]
  5. PHENYTOIN SODIUM CAP [Concomitant]

REACTIONS (3)
  - ABDOMINAL DISCOMFORT [None]
  - HEPATITIS [None]
  - METASTASES TO LIVER [None]
